FAERS Safety Report 16464007 (Version 3)
Quarter: 2019Q3

REPORT INFORMATION
  Report Type: Spontaneous
  Country: US (occurrence: US)
  Receive Date: 20190621
  Receipt Date: 20190923
  Transmission Date: 20191004
  Serious: Yes (Other)
  Sender: FDA-Public Use
  Company Number: US-ASTRAZENECA-2019SE09842

PATIENT
  Age: 884 Month
  Sex: Male
  Weight: 100.7 kg

DRUGS (28)
  1. CALCIUM ACETATE. [Concomitant]
     Active Substance: CALCIUM ACETATE
  2. PRILOSEC OTC [Suspect]
     Active Substance: OMEPRAZOLE MAGNESIUM
     Route: 048
  3. ADVAIR HFA [Concomitant]
     Active Substance: FLUTICASONE PROPIONATE\SALMETEROL XINAFOATE
  4. ALBUTEROL. [Concomitant]
     Active Substance: ALBUTEROL
  5. NYASTATIN [Concomitant]
  6. RENA VITE [Concomitant]
  7. NEXIUM [Suspect]
     Active Substance: ESOMEPRAZOLE MAGNESIUM
     Route: 048
  8. PREVACID [Suspect]
     Active Substance: LANSOPRAZOLE
  9. LACTULOSE. [Concomitant]
     Active Substance: LACTULOSE
  10. NOMTELUSTAST [Concomitant]
  11. OMEPRAZOLE. [Concomitant]
     Active Substance: OMEPRAZOLE
  12. NEXIUM 24HR [Suspect]
     Active Substance: ESOMEPRAZOLE MAGNESIUM
  13. COLCRYS [Concomitant]
     Active Substance: COLCHICINE
     Indication: GOUT
  14. FLONASE [Concomitant]
     Active Substance: FLUTICASONE PROPIONATE
  15. OXYGEN. [Concomitant]
     Active Substance: OXYGEN
  16. PRILOSEC [Suspect]
     Active Substance: OMEPRAZOLE MAGNESIUM
     Route: 048
  17. PREVACID 24 HR [Suspect]
     Active Substance: LANSOPRAZOLE
  18. AMLOBIPINE [Concomitant]
  19. LISINOTOL [Concomitant]
     Indication: BLOOD PRESSURE MEASUREMENT
  20. MIDOGRINE HCL [Concomitant]
  21. ATORVASTATIN CALCIUM. [Concomitant]
     Active Substance: ATORVASTATIN CALCIUM
  22. CITIAPRIOLAM [Concomitant]
  23. SINGULAIRE [Concomitant]
  24. MOVOLOG [Concomitant]
  25. SYMBICORT [Concomitant]
     Active Substance: BUDESONIDE\FORMOTEROL FUMARATE DIHYDRATE
  26. GLIPIVIDE [Concomitant]
     Active Substance: GLIPIZIDE
  27. LANTUS [Concomitant]
     Active Substance: INSULIN GLARGINE
     Indication: DIABETES MELLITUS
  28. METOPROLOL. [Concomitant]
     Active Substance: METOPROLOL

REACTIONS (5)
  - Rebound acid hypersecretion [Unknown]
  - Chronic kidney disease [Unknown]
  - Renal injury [Unknown]
  - Renal failure [Unknown]
  - Nephropathy [Not Recovered/Not Resolved]

NARRATIVE: CASE EVENT DATE: 201902
